FAERS Safety Report 17034798 (Version 1)
Quarter: 2019Q4

REPORT INFORMATION
  Report Type: Spontaneous
  Country: US (occurrence: US)
  Receive Date: 20191115
  Receipt Date: 20191115
  Transmission Date: 20200122
  Serious: No
  Sender: FDA-Public Use
  Company Number: US-SHIRE-US201939190

PATIENT
  Sex: Female

DRUGS (3)
  1. VYVANSE [Suspect]
     Active Substance: LISDEXAMFETAMINE DIMESYLATE
     Indication: FEELING ABNORMAL
     Dosage: 50 MILLIGRAM
     Route: 065
     Dates: start: 201711
  2. VYVANSE [Suspect]
     Active Substance: LISDEXAMFETAMINE DIMESYLATE
     Indication: HYPOTHYROIDISM
     Dosage: 40 MILLIGRAM
     Route: 065
  3. VYVANSE [Suspect]
     Active Substance: LISDEXAMFETAMINE DIMESYLATE
     Indication: FATIGUE

REACTIONS (3)
  - Product dose omission [Unknown]
  - Drug ineffective [Unknown]
  - Intentional product use issue [Unknown]
